FAERS Safety Report 6132318-9 (Version None)
Quarter: 2009Q1

REPORT INFORMATION
  Report Type: 
  Country: None (occurrence: None)
  Receive Date: 20090324
  Receipt Date: 20090310
  Transmission Date: 20090719
  Serious: Yes (Other)
  Sender: FDA-Public Use
  Company Number: 2009EN000061

PATIENT
  Age: 15 Year

DRUGS (2)
  1. ONCASPAR [Suspect]
     Indication: DRUG USE FOR UNKNOWN INDICATION
  2. EPRATUZUMAB (EPRATUZUMAB) [Suspect]
     Indication: DRUG USE FOR UNKNOWN INDICATION

REACTIONS (2)
  - HAEMORRHAGE INTRACRANIAL [None]
  - INFECTION [None]
